FAERS Safety Report 20732461 (Version 2)
Quarter: 2022Q2

REPORT INFORMATION
  Report Type: Spontaneous
  Country: US (occurrence: US)
  Receive Date: 20220420
  Receipt Date: 20220429
  Transmission Date: 20220721
  Serious: No
  Sender: FDA-Public Use
  Company Number: US-PFIZER INC-202200119874

PATIENT
  Age: 67 Year
  Sex: Male

DRUGS (10)
  1. IBRANCE [Suspect]
     Active Substance: PALBOCICLIB
     Dosage: 125 MG, CYCLIC (TAKE ON DAY 1 THROUGH 21 OF A 28 DAY CYCLE)
     Route: 048
     Dates: start: 20220112
  2. IBRANCE [Suspect]
     Active Substance: PALBOCICLIB
     Dosage: 100 MG
  3. IBRANCE [Suspect]
     Active Substance: PALBOCICLIB
     Dosage: 75 MG, CYCLIC (TAKE 1 TABLET DAILY ON DAYS 1 THROUGH 21 OF A 28 DAY CYCLE)
     Dates: start: 2022
  4. CIALIS [Concomitant]
     Active Substance: TADALAFIL
  5. ALLOPURINOL [Concomitant]
     Active Substance: ALLOPURINOL
  6. LISINOPRIL [Concomitant]
     Active Substance: LISINOPRIL
  7. ASPIRIN [Concomitant]
     Active Substance: ASPIRIN
  8. TYLENOL [Concomitant]
     Active Substance: ACETAMINOPHEN
  9. AMLODIPINE BESYLATE [Concomitant]
     Active Substance: AMLODIPINE BESYLATE
  10. ANASTROZOLE [Concomitant]
     Active Substance: ANASTROZOLE

REACTIONS (3)
  - Somnolence [Not Recovered/Not Resolved]
  - White blood cell count decreased [Unknown]
  - Hot flush [Not Recovered/Not Resolved]
